FAERS Safety Report 6182966-5 (Version None)
Quarter: 2009Q2

REPORT INFORMATION
  Report Type: 
  Country: None (occurrence: None)
  Receive Date: 20090507
  Receipt Date: 20090430
  Transmission Date: 20091009
  Serious: Yes (Hospitalization, Disabling)
  Sender: FDA-Public Use
  Company Number: FR-AVENTIS-200911669GDDC

PATIENT
  Age: 34 Year
  Sex: Female

DRUGS (7)
  1. RIFATER [Suspect]
     Indication: TUBERCULOSIS
     Dosage: DOSE: 4 DF
     Dates: start: 20081114
  2. TRUVADA [Suspect]
     Indication: HIV INFECTION
     Dosage: DOSE: 1 DF
     Dates: start: 20081114
  3. SUSTIVA [Suspect]
     Indication: HIV INFECTION
     Dosage: DOSE: 1 DF
     Dates: start: 20081114
  4. FUZEON [Suspect]
     Indication: HIV INFECTION
     Dates: start: 20081114
  5. MYAMBUTOL [Suspect]
     Indication: TUBERCULOSIS
     Dosage: DOSE: 2 DF
     Dates: start: 20081114
  6. FOLIC ACID [Concomitant]
     Dosage: DOSE: 1 DF
  7. BACTRIM [Concomitant]
     Indication: PROPHYLAXIS
     Dosage: DOSE: 1 DF
     Dates: start: 20081114

REACTIONS (3)
  - IMMUNE RECONSTITUTION SYNDROME [None]
  - IMPAIRED GASTRIC EMPTYING [None]
  - LYMPHADENOPATHY [None]
